FAERS Safety Report 4384827-0 (Version None)
Quarter: 2004Q2

REPORT INFORMATION
  Report Type: 
  Country: None (occurrence: None)
  Receive Date: 20040621
  Receipt Date: 20040609
  Transmission Date: 20050107
  Serious: Yes (Hospitalization, Other)
  Sender: FDA-Public Use
  Company Number: FRWYE228023JUL03

PATIENT
  Age: 70 Year
  Sex: Male

DRUGS (3)
  1. TAZOCILLINE (PIPERACILLIN/TAZOBACTAM, INJECTION) [Suspect]
     Indication: BRONCHOPNEUMONIA
     Dosage: 2.25 G 4X PER 1 DAY INTRAVENOUS
     Route: 042
     Dates: start: 20030524, end: 20030610
  2. AMIKACIN [Suspect]
     Indication: BRONCHOPNEUMONIA
     Dates: start: 20030527, end: 20030603
  3. FONZYLANE (BUFLOMEDIL HYDROCHLORIDE) [Concomitant]

REACTIONS (7)
  - ANTIBIOTIC LEVEL ABOVE THERAPEUTIC [None]
  - CONDITION AGGRAVATED [None]
  - CONVULSION [None]
  - DIALYSIS [None]
  - DRUG TOXICITY [None]
  - OVERDOSE [None]
  - RENAL FAILURE CHRONIC [None]
